FAERS Safety Report 7096449-1 (Version None)
Quarter: 2010Q4

REPORT INFORMATION
  Report Type: 
  Country: None (occurrence: None)
  Receive Date: 20101111
  Receipt Date: 20081114
  Transmission Date: 20110411
  Serious: No
  Sender: FDA-Public Use
  Company Number: US-KINGPHARMUSA00001-K200801319

PATIENT
  Sex: Female

DRUGS (6)
  1. ALTACE [Suspect]
     Indication: HYPERTENSION
     Dosage: 10 MG, QD
     Route: 048
  2. METFORMIN [Concomitant]
     Indication: DIABETES MELLITUS
     Dosage: UNK
     Route: 048
  3. ASPIRIN [Concomitant]
     Dosage: 81 MG, QD
  4. CENTRUM SILVER                     /01292501/ [Concomitant]
     Dosage: UNK
  5. CHROMIUM PICOLINATE [Concomitant]
     Dosage: 200 MCG, QD
  6. ZOCOR [Concomitant]
     Dosage: 10 MG, QD

REACTIONS (1)
  - HEART RATE INCREASED [None]
